FAERS Safety Report 6056446-1 (Version None)
Quarter: 2009Q1

REPORT INFORMATION
  Report Type: 
  Country: None (occurrence: None)
  Receive Date: 20090129
  Receipt Date: 20090122
  Transmission Date: 20090719
  Serious: Yes (Other)
  Sender: FDA-Public Use
  Company Number: BR-BAYER-200911423LA

PATIENT
  Age: 0 Hour
  Sex: Female
  Weight: 6 kg

DRUGS (1)
  1. YASMIN [Suspect]
     Indication: ORAL CONTRACEPTION
     Route: 064
     Dates: start: 20080201, end: 20080301

REACTIONS (1)
  - PREMATURE BABY [None]
